FAERS Safety Report 8080093-3 (Version None)
Quarter: 2012Q1

REPORT INFORMATION
  Report Type: 
  Country: None (occurrence: None)
  Receive Date: 20120129
  Receipt Date: 20111031
  Transmission Date: 20120608
  Serious: No
  Sender: FDA-Public Use
  Company Number: US-ABBOTT-11P-163-0869782-00

PATIENT
  Age: 20 Year
  Sex: Male

DRUGS (2)
  1. MULTI-VITAMINS [Concomitant]
     Indication: PRODUCT USED FOR UNKNOWN INDICATION
  2. HUMIRA [Suspect]
     Indication: CROHN'S DISEASE
     Dates: start: 20110917

REACTIONS (3)
  - INJECTION SITE PAIN [None]
  - MALAISE [None]
  - DRUG INEFFECTIVE [None]
